FAERS Safety Report 14342833 (Version 1)
Quarter: 2018Q1

REPORT INFORMATION
  Report Type: Spontaneous
  Country: IT (occurrence: IT)
  Receive Date: 20180102
  Receipt Date: 20180102
  Transmission Date: 20180509
  Serious: Yes (Hospitalization)
  Sender: FDA-Public Use
  Company Number: IT-BAYER-2018-000509

PATIENT
  Age: 68 Year
  Sex: Female

DRUGS (2)
  1. CARDIOASPIRIN 100 MG [Suspect]
     Active Substance: ASPIRIN
     Dosage: 6 G, IN TOTAL
     Route: 048
     Dates: start: 20171211
  2. TORA-DOL [Suspect]
     Active Substance: KETOROLAC TROMETHAMINE
     Route: 048

REACTIONS (2)
  - Suicide attempt [Recovered/Resolved]
  - Abdominal pain upper [Recovered/Resolved]

NARRATIVE: CASE EVENT DATE: 20171211
